FAERS Safety Report 20774085 (Version 1)
Quarter: 2022Q2

REPORT INFORMATION
  Report Type: Spontaneous
  Country: US (occurrence: US)
  Receive Date: 20220502
  Receipt Date: 20220502
  Transmission Date: 20220721
  Serious: No
  Sender: FDA-Public Use
  Company Number: US-AMGEN-USASP2022070131

PATIENT
  Age: 76 Year
  Sex: Female

DRUGS (2)
  1. PROLIA [Suspect]
     Active Substance: DENOSUMAB
     Indication: Osteoporosis
     Dosage: UNK
     Route: 065
     Dates: start: 20211028
  2. COVID-19 VACCINE [Concomitant]
     Dosage: UNK
     Dates: start: 20220411

REACTIONS (9)
  - Tooth fracture [Unknown]
  - Inflammation [Unknown]
  - Upper-airway cough syndrome [Not Recovered/Not Resolved]
  - Toothache [Recovering/Resolving]
  - Pain [Unknown]
  - Cystitis [Unknown]
  - Rhinorrhoea [Unknown]
  - Swelling face [Recovering/Resolving]
  - Rash [Unknown]

NARRATIVE: CASE EVENT DATE: 20211201
